FAERS Safety Report 21039308 (Version 3)
Quarter: 2022Q3

REPORT INFORMATION
  Report Type: Spontaneous
  Country: US (occurrence: US)
  Receive Date: 20220704
  Receipt Date: 20220801
  Transmission Date: 20221027
  Serious: No
  Sender: FDA-Public Use
  Company Number: US-Calliditas-2022CAL00143

PATIENT
  Age: 55 Year
  Sex: Female

DRUGS (1)
  1. TARPEYO [Suspect]
     Active Substance: BUDESONIDE
     Indication: IgA nephropathy
     Dosage: 16 MG (4 MG CAPSULES) ONCE DAILY
     Route: 048
     Dates: start: 20220617

REACTIONS (4)
  - Miliaria [Unknown]
  - Pruritus [Unknown]
  - Rash [Unknown]
  - Drug intolerance [Unknown]

NARRATIVE: CASE EVENT DATE: 20220601
